FAERS Safety Report 6095657-6 (Version None)
Quarter: 2009Q1

REPORT INFORMATION
  Report Type: 
  Country: None (occurrence: None)
  Receive Date: 20090227
  Receipt Date: 20080516
  Transmission Date: 20090719
  Serious: No
  Sender: FDA-Public Use
  Company Number: A0728324A

PATIENT
  Age: 35 Year
  Sex: Male

DRUGS (5)
  1. LAMICTAL [Suspect]
     Indication: DRUG USE FOR UNKNOWN INDICATION
     Dosage: 150MG PER DAY
     Route: 048
     Dates: start: 20071201
  2. LOTREL [Concomitant]
  3. LOVAZA [Concomitant]
  4. KLONOPIN [Concomitant]
  5. PROZAC [Concomitant]

REACTIONS (1)
  - TOOTH EROSION [None]
